FAERS Safety Report 14588794 (Version 4)
Quarter: 2018Q3

REPORT INFORMATION
  Report Type: Report from Study
  Country: US (occurrence: US)
  Receive Date: 20180301
  Receipt Date: 20180809
  Transmission Date: 20181010
  Serious: Yes (Hospitalization, Other)
  Sender: FDA-Public Use
  Company Number: US-EXELIXIS-CABO-18012324

PATIENT
  Age: 75 Year
  Sex: Female

DRUGS (19)
  1. CABOMETYX [Suspect]
     Active Substance: CABOZANTINIB S-MALATE
     Dosage: 40 MG, QD
     Dates: start: 20180309, end: 20180703
  2. PROMETHAZINE [Concomitant]
     Active Substance: PROMETHAZINE\PROMETHAZINE HYDROCHLORIDE
  3. ELIQUIS [Suspect]
     Active Substance: APIXABAN
     Dosage: UNK
  4. AMLODIPINE [Concomitant]
     Active Substance: AMLODIPINE BESYLATE
  5. NEW EYES VITAMIN [Concomitant]
  6. ALOE VERA [Concomitant]
     Active Substance: ALOE VERA LEAF
  7. COLACE [Concomitant]
     Active Substance: DOCUSATE SODIUM
  8. OXYCONTIN [Concomitant]
     Active Substance: OXYCODONE HYDROCHLORIDE
  9. HYDRALAZINE [Concomitant]
     Active Substance: HYDRALAZINE HYDROCHLORIDE
  10. CABOMETYX [Suspect]
     Active Substance: CABOZANTINIB S-MALATE
     Indication: RENAL CANCER
     Dosage: 60 MG, QD
     Route: 048
     Dates: start: 20170927, end: 20180124
  11. CABOMETYX [Suspect]
     Active Substance: CABOZANTINIB S-MALATE
     Dosage: 60 MG, QD
     Route: 048
  12. CRANBERRY. [Concomitant]
     Active Substance: CRANBERRY
  13. SUNITINIB [Suspect]
     Active Substance: SUNITINIB
     Dosage: 40 MG, QD
  14. ATENOLOL. [Concomitant]
     Active Substance: ATENOLOL
  15. CARDIZEM [Concomitant]
     Active Substance: DILTIAZEM HYDROCHLORIDE
  16. VITAMIN B COMPLEX [Concomitant]
     Active Substance: CYANOCOBALAMIN\DEXPANTHENOL\NIACINAMIDE\PYRIDOXINE HYDROCHLORIDE\RIBOFLAVIN 5^-PHOSPHATE SODIUM\THIAMINE HYDROCHLORIDE\VITAMIN B COMPLEX
  17. VITAMIN D [Concomitant]
     Active Substance: CHOLECALCIFEROL
  18. SENNA [Concomitant]
     Active Substance: SENNA LEAF\SENNOSIDES\SENNOSIDES A AND B
  19. XGEVA [Concomitant]
     Active Substance: DENOSUMAB

REACTIONS (11)
  - Cystitis [Recovered/Resolved]
  - Colitis [Recovered/Resolved]
  - Hiatus hernia [Unknown]
  - Traumatic fracture [Unknown]
  - Road traffic accident [Unknown]
  - Inflammatory bowel disease [Recovered/Resolved]
  - Cancer pain [Recovering/Resolving]
  - Mesenteric artery stenosis [Unknown]
  - Pleural effusion [Unknown]
  - Atrial fibrillation [Recovering/Resolving]
  - Contusion [Unknown]

NARRATIVE: CASE EVENT DATE: 20180122
